FAERS Safety Report 10965686 (Version 1)
Quarter: 2015Q1

REPORT INFORMATION
  Report Type: Spontaneous
  Country: CA (occurrence: CA)
  Receive Date: 20150330
  Receipt Date: 20150330
  Transmission Date: 20150721
  Serious: Yes (Other)
  Sender: FDA-Public Use
  Company Number: CA-ROCHE-1556318

PATIENT
  Sex: Female

DRUGS (3)
  1. ACTEMRA [Suspect]
     Active Substance: TOCILIZUMAB
     Indication: PRODUCT USED FOR UNKNOWN INDICATION
     Dosage: FOR MORE THAN THREE MONTHS NOS
     Route: 042
     Dates: start: 2013, end: 2013
  2. ORENCIA [Suspect]
     Active Substance: ABATACEPT
     Indication: PRODUCT USED FOR UNKNOWN INDICATION
     Dosage: DURATION: MORE THAN 3 MONTHS
     Route: 042
     Dates: start: 2014, end: 2014
  3. SIMPONI [Suspect]
     Active Substance: GOLIMUMAB
     Indication: PRODUCT USED FOR UNKNOWN INDICATION
     Dosage: DURATION: MORE THAN 3 MONTHS
     Route: 058
     Dates: start: 2014, end: 2014

REACTIONS (4)
  - Joint swelling [Unknown]
  - Drug ineffective [Unknown]
  - Arthralgia [Unknown]
  - C-reactive protein increased [Unknown]
